FAERS Safety Report 18419930 (Version 1)
Quarter: 2020Q4

REPORT INFORMATION
  Report Type: Spontaneous
  Country: US (occurrence: US)
  Receive Date: 20201023
  Receipt Date: 20201023
  Transmission Date: 20210114
  Serious: Yes (Death, Hospitalization, Other)
  Sender: FDA-Public Use
  Company Number: US-APOTEX-2020AP020184

PATIENT
  Age: 50 Year
  Sex: Female
  Weight: 48 kg

DRUGS (2)
  1. CYCLOSPORINE. [Suspect]
     Active Substance: CYCLOSPORINE
     Indication: APLASTIC ANAEMIA
     Dosage: UNK
     Route: 065
  2. ELTROMBOPAG [Concomitant]
     Active Substance: ELTROMBOPAG
     Indication: APLASTIC ANAEMIA
     Dosage: UNK
     Route: 065

REACTIONS (10)
  - Asthenia [Unknown]
  - Infection [Unknown]
  - Hepatic function abnormal [Fatal]
  - Weight decreased [Unknown]
  - Drug intolerance [Unknown]
  - Failure to thrive [Unknown]
  - Pain [Unknown]
  - Fatigue [Unknown]
  - Sepsis [Fatal]
  - Drug ineffective [Unknown]
